FAERS Safety Report 6964373-8 (Version None)
Quarter: 2010Q3

REPORT INFORMATION
  Report Type: 
  Country: None (occurrence: None)
  Receive Date: 20100903
  Receipt Date: 20100830
  Transmission Date: 20110219
  Serious: Yes (Death)
  Sender: FDA-Public Use
  Company Number: US-ABBOTT-10P-163-0666888-00

PATIENT
  Sex: Female
  Weight: 49.94 kg

DRUGS (4)
  1. HUMIRA [Suspect]
     Indication: RHEUMATOID ARTHRITIS
     Dates: start: 20090301, end: 20100801
  2. CALCIUM [Concomitant]
     Indication: PRODUCT USED FOR UNKNOWN INDICATION
  3. FOSAMAX [Concomitant]
     Indication: PRODUCT USED FOR UNKNOWN INDICATION
  4. VITAMIN D [Concomitant]
     Indication: PRODUCT USED FOR UNKNOWN INDICATION

REACTIONS (9)
  - ANEURYSM [None]
  - CARDIAC FAILURE [None]
  - CARDIAC VALVE RUPTURE [None]
  - DYSPNOEA [None]
  - HAEMORRHAGE [None]
  - LARGE INTESTINAL ULCER HAEMORRHAGE [None]
  - MYOCARDIAL INFARCTION [None]
  - PALPITATIONS [None]
  - URINARY TRACT INFECTION BACTERIAL [None]
